FAERS Safety Report 25661534 (Version 4)
Quarter: 2025Q4

REPORT INFORMATION
  Report Type: Spontaneous
  Country: EU (occurrence: EU)
  Receive Date: 20250808
  Receipt Date: 20251007
  Transmission Date: 20260118
  Serious: Yes (Death, Hospitalization)
  Sender: BIOGEN
  Company Number: EU-BIOGEN-2025BI01319569

PATIENT
  Age: 57 Year
  Sex: Male
  Weight: 65 kg

DRUGS (4)
  1. TOFERSEN [Suspect]
     Active Substance: TOFERSEN
     Indication: Amyotrophic lateral sclerosis
     Dosage: 100MG INTRATHECAL EVERY 28 DAYS
     Route: 050
     Dates: start: 20230707, end: 20250718
  2. RILUZOLE [Concomitant]
     Active Substance: RILUZOLE
     Indication: Product used for unknown indication
     Route: 050
  3. ACETYLCARNITINE [Concomitant]
     Active Substance: ACETYLCARNITINE
     Indication: Amyotrophic lateral sclerosis
     Dosage: 500 MILLIGRAMS TWICE DAILY IN TABLET FORM
     Route: 050
  4. RILUZOLE [Concomitant]
     Active Substance: RILUZOLE
     Indication: Amyotrophic lateral sclerosis
     Dosage: ORAL SUSPENSION 10ML TWICE IN A DAY
     Route: 050
     Dates: start: 20221117, end: 20250724

REACTIONS (1)
  - Cerebral venous sinus thrombosis [Fatal]

NARRATIVE: CASE EVENT DATE: 20250724
